FAERS Safety Report 13953512 (Version 1)
Quarter: 2017Q3

REPORT INFORMATION
  Report Type: Spontaneous
  Country: US (occurrence: None)
  Receive Date: 20170908
  Receipt Date: 20170908
  Transmission Date: 20171128
  Serious: Yes (Hospitalization)
  Sender: FDA-Public Use
  Company Number: None

PATIENT
  Age: 1 Year
  Sex: Female
  Weight: 15 kg

DRUGS (5)
  1. CLOLAR [Suspect]
     Active Substance: CLOFARABINE
     Dates: end: 20120602
  2. CYCLOPHOSPHAMIDE. [Suspect]
     Active Substance: CYCLOPHOSPHAMIDE
     Dates: end: 20120602
  3. ETOPOSIDE (VP-16) [Suspect]
     Active Substance: ETOPOSIDE
     Dates: end: 20120602
  4. ONCASPAR [Suspect]
     Active Substance: PEGASPARGASE
     Dates: end: 20120515
  5. VINCRISTINE SULFATE. [Suspect]
     Active Substance: VINCRISTINE SULFATE
     Dates: end: 20120612

REACTIONS (11)
  - Vomiting [None]
  - Streptococcus test positive [None]
  - Abdominal distension [None]
  - Blood culture positive [None]
  - Bone marrow failure [None]
  - Pneumonia [None]
  - Pancytopenia [None]
  - Small intestinal obstruction [None]
  - Splenic abscess [None]
  - Febrile neutropenia [None]
  - Pancreatitis [None]

NARRATIVE: CASE EVENT DATE: 20120605
